FAERS Safety Report 6178007-6 (Version None)
Quarter: 2009Q2

REPORT INFORMATION
  Report Type: 
  Country: None (occurrence: None)
  Receive Date: 20090501
  Receipt Date: 20090501
  Transmission Date: 20091009
  Serious: Yes (Other)
  Sender: FDA-Public Use
  Company Number: None

PATIENT
  Sex: Female
  Weight: 97.27 kg

DRUGS (5)
  1. CELEXA [Suspect]
     Dosage: 20MG TABLET 20 MG QD ORAL
     Route: 048
     Dates: start: 20070726, end: 20090430
  2. CORTISPORIN OTIC SOLUTION (CORTISPORIN SO... [Concomitant]
  3. DOXYCYCLINE [Concomitant]
  4. HYDROCHLOROTHIAZIDE [Concomitant]
  5. LEVOXYL [Concomitant]

REACTIONS (1)
  - RESTLESSNESS [None]
